FAERS Safety Report 15120068 (Version 6)
Quarter: 2018Q4

REPORT INFORMATION
  Report Type: Report from Study
  Country: FR (occurrence: FR)
  Receive Date: 20180709
  Receipt Date: 20181217
  Transmission Date: 20190204
  Serious: Yes (Hospitalization, Other)
  Sender: FDA-Public Use
  Company Number: FR-ROCHE-2150462

PATIENT
  Age: 77 Year
  Sex: Male
  Weight: 70 kg

DRUGS (111)
  1. DOXORUBICIN [Suspect]
     Active Substance: DOXORUBICIN
     Indication: DIFFUSE LARGE B-CELL LYMPHOMA
     Dosage: DATE OF MOST RECENT DOSE OF DOXORUBICIN PRIOR TO SAE ONSET 28/JUN/2018: 91 MG
     Route: 042
     Dates: start: 20180628
  2. NEFOPAM [Concomitant]
     Active Substance: NEFOPAM
     Indication: HYPERCALCAEMIA
  3. OXYCODONE [Concomitant]
     Active Substance: OXYCODONE
     Indication: PAIN
     Route: 048
     Dates: start: 20180703
  4. PANTOPRAZOLE [Concomitant]
     Active Substance: PANTOPRAZOLE
     Indication: HYPERCALCAEMIA
  5. ZOPICLONE [Concomitant]
     Active Substance: ZOPICLONE
     Indication: INSOMNIA
     Route: 048
  6. LORATADINE. [Concomitant]
     Active Substance: LORATADINE
     Indication: HYPERCALCAEMIA
  7. PREDNISOLONE. [Concomitant]
     Active Substance: PREDNISOLONE
     Indication: HYPERCALCAEMIA
     Route: 039
     Dates: start: 20180808, end: 20180829
  8. ZOMETA [Concomitant]
     Active Substance: ZOLEDRONIC ACID
     Indication: OSTEOPOROSIS
     Route: 042
     Dates: start: 20180622, end: 20180622
  9. FILGRASTIM [Concomitant]
     Active Substance: FILGRASTIM
     Dosage: ANTI NEUTROPENIA
     Route: 042
     Dates: start: 20180706, end: 20180710
  10. INNOHEP [Concomitant]
     Active Substance: TINZAPARIN SODIUM
     Dosage: ANTI THROMBOSIS
     Route: 058
     Dates: end: 20180809
  11. ALBUMINE [Concomitant]
     Active Substance: ALBUMIN HUMAN
     Dosage: VASCULAR FILLING
     Route: 042
     Dates: start: 20180716, end: 20180718
  12. LANSOYL [Concomitant]
     Active Substance: MINERAL OIL
     Indication: CONSTIPATION
     Dosage: DOSE 1 OTHER
     Route: 048
     Dates: start: 20180713, end: 20180724
  13. ZYLORIC [Concomitant]
     Active Substance: ALLOPURINOL
     Indication: HYPERURICAEMIA
     Route: 048
     Dates: start: 20180720, end: 20180724
  14. OXYNORM [Concomitant]
     Active Substance: OXYCODONE HYDROCHLORIDE
     Indication: PAIN
     Route: 048
     Dates: end: 20180703
  15. LOXEN (FRANCE) [Concomitant]
     Active Substance: NICARDIPINE HYDROCHLORIDE
     Indication: HYPERTENSION
     Route: 048
     Dates: start: 20180915, end: 20181009
  16. LOXAPAC [Concomitant]
     Active Substance: LOXAPINE
     Indication: PSYCHOTIC DISORDER
     Route: 048
     Dates: start: 20180907
  17. NOVORAPID [Concomitant]
     Active Substance: INSULIN ASPART
     Indication: HYPERGLYCAEMIA
     Route: 058
     Dates: start: 20180628, end: 20180714
  18. AUGMENTIN [Concomitant]
     Active Substance: AMOXICILLIN\CLAVULANATE POTASSIUM
     Dosage: ANTI INFECTIVE
     Route: 065
     Dates: start: 20180619, end: 20180627
  19. LORATADINE. [Concomitant]
     Active Substance: LORATADINE
     Indication: PREMEDICATION
     Route: 048
     Dates: start: 20180627
  20. MESNA. [Concomitant]
     Active Substance: MESNA
     Indication: PREMEDICATION
     Route: 042
     Dates: start: 20180628, end: 20181010
  21. DAFALGAN [Concomitant]
     Active Substance: ACETAMINOPHEN
     Indication: HYPERCALCAEMIA
  22. ACUPAN [Concomitant]
     Active Substance: NEFOPAM HYDROCHLORIDE
     Route: 048
     Dates: start: 20180714, end: 20180809
  23. SOLU-MEDROL [Concomitant]
     Active Substance: METHYLPREDNISOLONE SODIUM SUCCINATE
     Indication: PREMEDICATION
     Route: 042
     Dates: start: 20180627
  24. SOLU-MEDROL [Concomitant]
     Active Substance: METHYLPREDNISOLONE SODIUM SUCCINATE
     Indication: LYMPHOMA
     Route: 042
     Dates: start: 20180520, end: 20180624
  25. MORPHINE [Concomitant]
     Active Substance: MORPHINE
     Indication: PAIN
     Route: 048
     Dates: start: 20180714, end: 20180714
  26. MORPHINE [Concomitant]
     Active Substance: MORPHINE
     Route: 048
     Dates: start: 20180714, end: 20180730
  27. ZELITREX [Concomitant]
     Active Substance: VALACYCLOVIR HYDROCHLORIDE
     Dosage: ANTI INFECTIVES
     Route: 048
     Dates: start: 20180710
  28. BACTRIM [Concomitant]
     Active Substance: SULFAMETHOXAZOLE\TRIMETHOPRIM
     Route: 048
     Dates: start: 20180711, end: 20180712
  29. KEPPRA [Concomitant]
     Active Substance: LEVETIRACETAM
     Indication: EPILEPSY
     Route: 048
     Dates: start: 20181001
  30. RITUXIMAB. [Suspect]
     Active Substance: RITUXIMAB
     Indication: DIFFUSE LARGE B-CELL LYMPHOMA
     Dosage: DATE OF MOST RECENT DOSE OF RITUXIMAB PRIOR TO SAE ONSET 27/JUN/2018: 685 MG, WILL BE GIVEN AS MONOT
     Route: 042
     Dates: start: 20180627
  31. NEFOPAM [Concomitant]
     Active Substance: NEFOPAM
     Indication: PAIN
     Route: 042
     Dates: start: 20180714
  32. PARACETAMOL [Concomitant]
     Active Substance: ACETAMINOPHEN
     Indication: PREMEDICATION
     Route: 048
     Dates: start: 20180627
  33. AMIKACINE [Concomitant]
     Active Substance: AMIKACIN
     Dosage: ANTI INFECTIVES
     Route: 042
     Dates: start: 20180706, end: 20180707
  34. CHLORHYDRATE DE MORPHINE [Concomitant]
     Active Substance: MORPHINE HYDROCHLORIDE
     Indication: PAIN
     Route: 042
     Dates: start: 20180703, end: 20180713
  35. LASILIX [Concomitant]
     Active Substance: FUROSEMIDE
     Route: 042
     Dates: start: 20180717, end: 20180718
  36. BINOCRIT [Concomitant]
     Active Substance: ERYTHROPOIETIN
     Indication: ANAEMIA
     Route: 058
     Dates: start: 20180702
  37. PACKED RED BLOOD CELLS [Concomitant]
     Active Substance: HUMAN RED BLOOD CELL
     Indication: ANAEMIA
     Dosage: DOSE : 3 OTHER
     Route: 042
     Dates: start: 20180701, end: 20180702
  38. SALBUTAMOL [Concomitant]
     Active Substance: ALBUTEROL
     Dosage: PREMEDICATION OF PENTACARINAT
     Route: 050
     Dates: start: 20180808
  39. XATRAL [Concomitant]
     Active Substance: ALFUZOSIN
     Indication: PROSTATOMEGALY
     Route: 048
     Dates: start: 20180908
  40. AUGMENTIN [Concomitant]
     Active Substance: AMOXICILLIN\CLAVULANATE POTASSIUM
     Route: 065
     Dates: end: 2018
  41. CALCITONINE [Concomitant]
     Indication: HYPERCALCAEMIA
  42. OXYCODONE [Concomitant]
     Active Substance: OXYCODONE
     Indication: HYPERCALCAEMIA
     Route: 048
     Dates: start: 20180703
  43. PANTOPRAZOLE [Concomitant]
     Active Substance: PANTOPRAZOLE
     Indication: PROPHYLAXIS
     Dosage: GASTRIC PROTECTION
     Route: 050
     Dates: end: 20180730
  44. TAMSULOSINE [Concomitant]
     Active Substance: TAMSULOSIN HYDROCHLORIDE
     Indication: HYPERCALCAEMIA
  45. KARDEGIC [Concomitant]
     Active Substance: ASPIRIN DL-LYSINE
     Indication: TRANSIENT ISCHAEMIC ATTACK
     Route: 048
  46. MESNA. [Concomitant]
     Active Substance: MESNA
     Indication: HYPERCALCAEMIA
  47. INNOHEP [Concomitant]
     Active Substance: TINZAPARIN SODIUM
     Dosage: ANTI THROMBOSIS
     Route: 058
     Dates: start: 20180809, end: 20181008
  48. TAZOCILLINE [Concomitant]
     Active Substance: PIPERACILLIN SODIUM\TAZOBACTAM SODIUM
     Dosage: ANTI INFECTIVES
     Route: 042
     Dates: start: 20180703, end: 20180713
  49. LASILIX [Concomitant]
     Active Substance: FUROSEMIDE
     Route: 048
     Dates: start: 20180716, end: 20180717
  50. LASILIX [Concomitant]
     Active Substance: FUROSEMIDE
     Route: 048
     Dates: start: 20180723, end: 20180809
  51. AERIUS (DESLORATADINE) [Concomitant]
     Active Substance: DESLORATADINE
     Indication: PREMEDICATION
     Route: 048
     Dates: start: 20180627
  52. ZOPHREN [Concomitant]
     Active Substance: ONDANSETRON
     Indication: PREMEDICATION
     Route: 050
     Dates: start: 20180627, end: 20181010
  53. BINOCRIT [Concomitant]
     Active Substance: ERYTHROPOIETIN
     Route: 042
     Dates: start: 20180808
  54. PLATELETS [Concomitant]
     Active Substance: HUMAN PLATELET, ALLOGENIC
     Dosage: DOSE : 1 UNIT?BLEEDING DISORDERS
     Route: 065
     Dates: start: 20180706, end: 20180706
  55. PENTACARINAT [Concomitant]
     Active Substance: PENTAMIDINE ISETHIONATE
     Dosage: ANTI INFECTIVE
     Route: 050
     Dates: start: 20180808
  56. FORTIMEL [Concomitant]
     Active Substance: DIETARY SUPPLEMENT
     Indication: MALNUTRITION
     Dosage: DOSE: 2 OTHER?NUTRITION
     Route: 048
     Dates: start: 20180808, end: 20180909
  57. TIENAM [Concomitant]
     Active Substance: CILASTATIN SODIUM\IMIPENEM
     Route: 042
     Dates: start: 20181002, end: 20181009
  58. RISPERDAL [Concomitant]
     Active Substance: RISPERIDONE
     Indication: PSYCHOTIC DISORDER
     Route: 048
     Dates: start: 20180908, end: 20181107
  59. RISPERDAL [Concomitant]
     Active Substance: RISPERIDONE
     Indication: CONFUSIONAL STATE
     Route: 048
     Dates: start: 20181108, end: 20181115
  60. RISPERDAL [Concomitant]
     Active Substance: RISPERIDONE
     Route: 048
     Dates: start: 20181116, end: 20181118
  61. PLACEBO [Suspect]
     Active Substance: UNSPECIFIED INGREDIENT
     Indication: DIFFUSE LARGE B-CELL LYMPHOMA
     Dosage: DATE OF MOST RECENT DOSE ADMINISTERED: 28/JUN/2018
     Route: 042
     Dates: start: 20180628
  62. KARDEGIC [Concomitant]
     Active Substance: ASPIRIN DL-LYSINE
     Indication: HYPERCALCAEMIA
  63. FASTURTEC [Concomitant]
     Active Substance: RASBURICASE
     Dosage: ANTI LYSIS SYNDROM
     Route: 042
     Dates: start: 20180628, end: 20180628
  64. INNOHEP [Concomitant]
     Active Substance: TINZAPARIN SODIUM
     Dosage: ANTI THROMBOSIS
     Route: 058
     Dates: start: 20181009
  65. VANCOMYCINE [Concomitant]
     Active Substance: VANCOMYCIN
     Dosage: ANTI INFECTIVES
     Route: 042
     Dates: start: 20180703, end: 20180713
  66. CEFTAZIDIME. [Concomitant]
     Active Substance: CEFTAZIDIME
     Dosage: ANTI INFECTIVE
     Route: 042
     Dates: start: 20180721, end: 20180725
  67. CIPROFLOXACINE [Concomitant]
     Active Substance: CIPROFLOXACIN
     Route: 048
     Dates: start: 20180730, end: 20180803
  68. PHOSPHORE (FRANCE) [Concomitant]
     Indication: HYPOPHOSPHATAEMIA
     Dosage: DOSE: 4 AMPULE
     Route: 042
     Dates: start: 20180726, end: 20180809
  69. SODIUM BICARBONATE. [Concomitant]
     Active Substance: SODIUM BICARBONATE
     Indication: MUCOSAL INFLAMMATION
     Dosage: ANTI ORAL DRYNESS
     Route: 048
     Dates: start: 20180808, end: 20180909
  70. MORPHINE CHLORHYDRATE [Concomitant]
     Active Substance: MORPHINE HYDROCHLORIDE
     Indication: PAIN
     Route: 042
     Dates: start: 20180703, end: 20180713
  71. PREDNISONE. [Suspect]
     Active Substance: PREDNISONE
     Indication: DIFFUSE LARGE B-CELL LYMPHOMA
     Dosage: DAYS 1-5 OF EVERY 21 DAY CYCLE FOR 6 CYCLES ?DATE OF MOST RECENT DOSE OF PREDNISONE INTRAVENOUS PRIO
     Route: 048
     Dates: start: 20180627
  72. AUGMENTIN [Concomitant]
     Active Substance: AMOXICILLIN\CLAVULANATE POTASSIUM
     Dosage: 1000/200 MG?ANTI INFECTIVES
     Route: 042
     Dates: start: 20180622, end: 20180627
  73. TINZAPARIN [Concomitant]
     Active Substance: TINZAPARIN
     Indication: HYPERCALCAEMIA
     Dosage: ANTI THROMBOSIS
     Route: 058
     Dates: start: 20180624
  74. PARACETAMOL [Concomitant]
     Active Substance: ACETAMINOPHEN
     Indication: HYPERCALCAEMIA
  75. ONDANSETRON [Concomitant]
     Active Substance: ONDANSETRON
     Indication: PREMEDICATION
     Route: 050
     Dates: start: 20180627
  76. ONDANSETRON [Concomitant]
     Active Substance: ONDANSETRON
     Indication: HYPERCALCAEMIA
  77. DAFALGAN [Concomitant]
     Active Substance: ACETAMINOPHEN
     Indication: LYMPHOMA
     Route: 065
     Dates: end: 2018
  78. DAFALGAN [Concomitant]
     Active Substance: ACETAMINOPHEN
     Indication: PAIN
  79. LASILIX [Concomitant]
     Active Substance: FUROSEMIDE
     Indication: OEDEMA PERIPHERAL
     Route: 048
     Dates: start: 20180715, end: 20180716
  80. IMOVANE [Concomitant]
     Active Substance: ZOPICLONE
     Indication: INSOMNIA
     Route: 048
     Dates: end: 20180809
  81. PLATELETS [Concomitant]
     Active Substance: HUMAN PLATELET, ALLOGENIC
     Indication: THROMBOCYTOPENIA
     Dosage: DOSE : 1 UNIT?BLEEDING DISORDERS
     Route: 042
     Dates: start: 20180706, end: 20180706
  82. CIPROFLOXACINE [Concomitant]
     Active Substance: CIPROFLOXACIN
     Dosage: ANTI INFECTIVE
     Route: 048
     Dates: start: 20180730, end: 20180730
  83. METHOTREXATE. [Concomitant]
     Active Substance: METHOTREXATE
     Indication: LYMPHOMA
     Route: 039
     Dates: start: 20180808, end: 20180829
  84. FLAGYL [Concomitant]
     Active Substance: METRONIDAZOLE\METRONIDAZOLE HYDROCHLORIDE
     Indication: WOUND
     Dosage: DOSE: 1 (UNIT UNKNOWN)
     Route: 065
     Dates: start: 20180703, end: 20180703
  85. CYCLOPHOSPHAMIDE. [Suspect]
     Active Substance: CYCLOPHOSPHAMIDE
     Indication: DIFFUSE LARGE B-CELL LYMPHOMA
     Dosage: DATE OF MOST RECENT DOSE OF CYCLOPHOSPHAMIDE PRIOR TO SAE ONSET 28/JUN/2018: 1362.5 MG
     Route: 042
     Dates: start: 20180628
  86. RED BLOOD CELLS [Concomitant]
     Active Substance: HUMAN RED BLOOD CELL
     Indication: ANAEMIA
     Dosage: 3 TRANSFUSION
     Route: 042
     Dates: start: 20180701, end: 20180702
  87. ZOPICLONE [Concomitant]
     Active Substance: ZOPICLONE
     Indication: HYPERCALCAEMIA
  88. ZOMETA [Concomitant]
     Active Substance: ZOLEDRONIC ACID
     Indication: HYPERCALCAEMIA
  89. CEFEPIME [Concomitant]
     Active Substance: CEFEPIME HYDROCHLORIDE
     Dosage: ANTI INFECTIVE
     Route: 042
     Dates: start: 20180725, end: 20180803
  90. ACUPAN [Concomitant]
     Active Substance: NEFOPAM HYDROCHLORIDE
     Indication: PAIN
     Route: 042
     Dates: end: 20180714
  91. LASILIX [Concomitant]
     Active Substance: FUROSEMIDE
     Indication: HYPONATRAEMIA
     Route: 042
     Dates: start: 20180701, end: 20180705
  92. FOLINORAL [Concomitant]
     Active Substance: LEUCOVORIN CALCIUM
     Dosage: ANTI VITAMINE B6 DEPLETION
     Route: 048
     Dates: start: 20180712, end: 20180809
  93. XANAX [Concomitant]
     Active Substance: ALPRAZOLAM
     Indication: ANXIETY
     Route: 048
     Dates: start: 20180803, end: 20180803
  94. TRAMADOL. [Concomitant]
     Active Substance: TRAMADOL
     Indication: PAIN
     Route: 048
     Dates: start: 20180730, end: 20181128
  95. SKENAN [Concomitant]
     Active Substance: MORPHINE SULFATE
     Indication: PAIN
     Route: 048
     Dates: start: 20180714, end: 20180730
  96. POLARAMINE [Concomitant]
     Active Substance: DEXCHLORPHENIRAMINE MALEATE
     Route: 065
     Dates: start: 20180718, end: 20180718
  97. VINCRISTINE [Suspect]
     Active Substance: VINCRISTINE
     Indication: DIFFUSE LARGE B-CELL LYMPHOMA
     Dosage: DATE OF MOST RECENT DOSE OF BLINDED VINCRISTINE PRIOR TO SERIOUS ADVERSE EVENT ONSET 28/JUN/2018 ONC
     Route: 042
     Dates: start: 20180628
  98. AUGMENTIN [Concomitant]
     Active Substance: AMOXICILLIN\CLAVULANATE POTASSIUM
     Dosage: ULCERATION OF WOUND
     Route: 048
     Dates: end: 20180622
  99. CALCITONINE [Concomitant]
     Indication: OSTEOPOROSIS
     Route: 058
     Dates: start: 20180628, end: 20180630
  100. METHYLPREDNISOLONE. [Concomitant]
     Active Substance: METHYLPREDNISOLONE
     Indication: PREMEDICATION
     Route: 042
     Dates: start: 20180623, end: 20180624
  101. METHYLPREDNISOLONE. [Concomitant]
     Active Substance: METHYLPREDNISOLONE
     Indication: HYPERCALCAEMIA
     Route: 042
     Dates: start: 20180627
  102. RASBURICASE [Concomitant]
     Active Substance: RASBURICASE
     Indication: HYPERCALCAEMIA
     Dosage: ANTILYSIS SYNDROME
     Route: 042
     Dates: start: 20180628, end: 20180628
  103. TAMSULOSINE [Concomitant]
     Active Substance: TAMSULOSIN HYDROCHLORIDE
     Indication: PROSTATOMEGALY
     Route: 048
     Dates: end: 20180907
  104. PREDNISOLONE. [Concomitant]
     Active Substance: PREDNISOLONE
     Indication: LYMPHOMA
     Route: 065
  105. VANCOMYCINE [Concomitant]
     Active Substance: VANCOMYCIN
     Route: 042
     Dates: start: 20180703, end: 20180703
  106. BACTRIM [Concomitant]
     Active Substance: SULFAMETHOXAZOLE\TRIMETHOPRIM
     Dosage: ANTI INFECTIVES
     Route: 048
     Dates: start: 20180711, end: 20180712
  107. IPRATROPIUM [Concomitant]
     Active Substance: IPRATROPIUM
     Dosage: PREMEDICATION OF PENTACARINAT
     Route: 050
     Dates: start: 20180808
  108. ZARZIO [Concomitant]
     Active Substance: FILGRASTIM
     Route: 058
     Dates: start: 20180706, end: 20180710
  109. BACTRIM [Concomitant]
     Active Substance: SULFAMETHOXAZOLE\TRIMETHOPRIM
     Route: 048
     Dates: start: 20180711, end: 20180713
  110. SEVREDOL [Concomitant]
     Active Substance: MORPHINE
     Indication: PAIN
     Route: 048
     Dates: start: 20180714, end: 20180714
  111. HYDROCORTANCYL [Concomitant]
     Active Substance: PREDNISONE
     Route: 037
     Dates: start: 20180808, end: 20180829

REACTIONS (3)
  - Tumour lysis syndrome [Unknown]
  - Wound infection bacterial [Recovered/Resolved]
  - Haemorrhage [Recovered/Resolved]

NARRATIVE: CASE EVENT DATE: 20180629
